FAERS Safety Report 6304575-7 (Version None)
Quarter: 2009Q3

REPORT INFORMATION
  Report Type: 
  Country: None (occurrence: None)
  Receive Date: 20090806
  Receipt Date: 20090723
  Transmission Date: 20100115
  Serious: Yes (Other)
  Sender: FDA-Public Use
  Company Number: 2009-02982

PATIENT
  Age: 64 Year
  Sex: Male

DRUGS (2)
  1. VELCADE [Suspect]
     Indication: MULTIPLE MYELOMA
     Dosage: 2.2 MG, INTRAVENOUS
     Route: 042
  2. DEXAMETHASONE [Concomitant]

REACTIONS (19)
  - CONSTIPATION [None]
  - COUGH [None]
  - DECREASED APPETITE [None]
  - DYSURIA [None]
  - EPISTAXIS [None]
  - FLUSHING [None]
  - HEPATIC FUNCTION ABNORMAL [None]
  - HICCUPS [None]
  - HYPOAESTHESIA [None]
  - INSOMNIA [None]
  - MALAISE [None]
  - MENTAL DISORDER [None]
  - NASOPHARYNGITIS [None]
  - OEDEMA PERIPHERAL [None]
  - OROPHARYNGEAL PAIN [None]
  - PERIPHERAL COLDNESS [None]
  - SOMNOLENCE [None]
  - THROMBOCYTOPENIA [None]
  - VISION BLURRED [None]
